FAERS Safety Report 8167925-5 (Version None)
Quarter: 2012Q1

REPORT INFORMATION
  Report Type: 
  Country: None (occurrence: None)
  Receive Date: 20120227
  Receipt Date: 20120221
  Transmission Date: 20120608
  Serious: Yes (Hospitalization)
  Sender: FDA-Public Use
  Company Number: US-GLAXOSMITHKLINE-A0915621A

PATIENT
  Age: 52 Year
  Sex: Female
  Weight: 65.5 kg

DRUGS (2)
  1. AVANDIA [Suspect]
     Indication: DIABETES MELLITUS
     Dosage: 4MG PER DAY
     Route: 048
  2. AVANDAMET [Suspect]
     Indication: DIABETES MELLITUS
     Route: 048
     Dates: start: 20061201, end: 20071001

REACTIONS (3)
  - CEREBROVASCULAR ACCIDENT [None]
  - LEFT VENTRICULAR HYPERTROPHY [None]
  - HYPERTENSION [None]
